FAERS Safety Report 20439145 (Version 1)
Quarter: 2022Q1

REPORT INFORMATION
  Report Type: Report from Study
  Country: CA (occurrence: CA)
  Receive Date: 20220207
  Receipt Date: 20220207
  Transmission Date: 20220424
  Serious: Yes (Other)
  Sender: FDA-Public Use
  Company Number: CA-JNJFOC-20220207780

PATIENT
  Age: 17 Year
  Sex: Male

DRUGS (1)
  1. REMICADE [Suspect]
     Active Substance: INFLIXIMAB
     Indication: Crohn^s disease
     Dosage: DRUG RELOAD 0, 2, 6 AS WEEK 0, 5 MAINTENANCE INFUSIONS AFTER INITIAL LOADING DOSES
     Route: 042
     Dates: start: 20210412

REACTIONS (2)
  - Crohn^s disease [Unknown]
  - Drug level decreased [Unknown]

NARRATIVE: CASE EVENT DATE: 20220125
